FAERS Safety Report 8556494-3 (Version None)
Quarter: 2012Q3

REPORT INFORMATION
  Report Type: 
  Country: None (occurrence: None)
  Receive Date: 20120801
  Receipt Date: 20120730
  Transmission Date: 20120928
  Serious: Yes (Death)
  Sender: FDA-Public Use
  Company Number: PHHY2012CA065812

PATIENT
  Sex: Female

DRUGS (1)
  1. EXELON [Suspect]
     Dosage: 9.5 MG/24 HOURS
     Route: 062

REACTIONS (4)
  - DEATH [None]
  - APHAGIA [None]
  - GENERAL PHYSICAL HEALTH DETERIORATION [None]
  - CHOKING [None]
